FAERS Safety Report 4772223-3 (Version None)
Quarter: 2005Q3

REPORT INFORMATION
  Report Type: 
  Country: None (occurrence: None)
  Receive Date: 20050919
  Receipt Date: 20050209
  Transmission Date: 20060218
  Serious: No
  Sender: FDA-Public Use
  Company Number: US-BRISTOL-MYERS SQUIBB COMPANY-12858254

PATIENT
  Age: 61 Year
  Sex: Male

DRUGS (9)
  1. DEFINITY [Suspect]
     Indication: ECHOCARDIOGRAM
     Route: 040
     Dates: start: 20050209
  2. DIGOXIN [Concomitant]
  3. ENALAPRIL [Concomitant]
  4. SERAX [Concomitant]
  5. INSULIN [Concomitant]
  6. THIAMINE [Concomitant]
  7. FOLIC ACID [Concomitant]
  8. HEPARIN [Concomitant]
  9. DOFETILIDE [Concomitant]

REACTIONS (2)
  - PAIN IN EXTREMITY [None]
  - SENSATION OF HEAVINESS [None]
